FAERS Safety Report 7245928-2 (Version None)
Quarter: 2011Q1

REPORT INFORMATION
  Report Type: 
  Country: None (occurrence: None)
  Receive Date: 20110126
  Receipt Date: 20110114
  Transmission Date: 20110831
  Serious: Yes (Hospitalization)
  Sender: FDA-Public Use
  Company Number: PHHY2011JP02776

PATIENT
  Sex: Male
  Weight: 64 kg

DRUGS (6)
  1. FLUITRAN [Concomitant]
     Indication: HYPERTENSION
     Dosage: 2MG
     Route: 048
     Dates: start: 20100309
  2. HALCION [Concomitant]
     Dosage: 0.25MG
     Route: 048
     Dates: start: 20091109
  3. DIOVAN [Suspect]
     Indication: HYPERTENSION
     Dosage: 40MG ONCE DAILY
     Route: 048
     Dates: start: 20090821, end: 20091109
  4. DIOVAN [Suspect]
     Dosage: 80MG ONCE DAILY
     Route: 048
     Dates: start: 20091110
  5. URSO 250 [Concomitant]
     Dosage: 300MG
     Route: 048
     Dates: start: 20090526
  6. AMLODIPINE [Concomitant]
     Indication: HYPERTENSION
     Dosage: 5MG
     Route: 048
     Dates: start: 20091211

REACTIONS (2)
  - BRAIN CONTUSION [None]
  - HEPATIC FUNCTION ABNORMAL [None]
